FAERS Safety Report 23465019 (Version 2)
Quarter: 2024Q2

REPORT INFORMATION
  Report Type: Spontaneous
  Country: US (occurrence: US)
  Receive Date: 20240201
  Receipt Date: 20240425
  Transmission Date: 20240716
  Serious: Yes (Hospitalization)
  Sender: FDA-Public Use
  Company Number: US-HETERO-HET2024US00225

PATIENT
  Age: 76 Year
  Sex: Female

DRUGS (5)
  1. VALSARTAN [Suspect]
     Active Substance: VALSARTAN
     Indication: Product used for unknown indication
     Dosage: UNK
     Route: 065
  2. VALSARTAN [Suspect]
     Active Substance: VALSARTAN
     Dosage: 80 MILLIGRAM
     Route: 065
  3. VALSARTAN [Suspect]
     Active Substance: VALSARTAN
     Dosage: 160 MILLIGRAM
     Route: 065
  4. VALSARTAN [Suspect]
     Active Substance: VALSARTAN
     Dosage: 320 MILLIGRAM
     Route: 065
  5. VALSARTAN [Suspect]
     Active Substance: VALSARTAN
     Dosage: TAPER
     Route: 065

REACTIONS (6)
  - Fall [Unknown]
  - Cerebrovascular accident [Unknown]
  - Hypertension [Unknown]
  - Dry mouth [Unknown]
  - Nasopharyngitis [Unknown]
  - Incorrect dose administered [Unknown]
